FAERS Safety Report 21904048 (Version 1)
Quarter: 2023Q1

REPORT INFORMATION
  Report Type: Spontaneous
  Country: CA (occurrence: CA)
  Receive Date: 20230124
  Receipt Date: 20230124
  Transmission Date: 20230417
  Serious: Yes (Other)
  Sender: FDA-Public Use
  Company Number: CA-PFIZER INC-202200431904

PATIENT
  Age: 57 Year
  Sex: Female
  Weight: 89.7 kg

DRUGS (16)
  1. SULFASALAZINE [Suspect]
     Active Substance: SULFASALAZINE
     Indication: Psoriatic arthropathy
     Dosage: 1 DF, UNKNOWN DOSE
     Route: 065
     Dates: end: 2021
  2. SULFASALAZINE [Suspect]
     Active Substance: SULFASALAZINE
     Dosage: 1500 MG, 2X/DAY
     Route: 065
  3. LEFLUNOMIDE [Suspect]
     Active Substance: LEFLUNOMIDE
     Indication: Psoriatic arthropathy
     Dosage: UNK
  4. LEFLUNOMIDE [Suspect]
     Active Substance: LEFLUNOMIDE
     Dosage: 20 MG, DAILY
  5. ATENOLOL [Concomitant]
     Active Substance: ATENOLOL
     Dosage: 12.5 MG, DAILY
  6. COVID-19 VACCINE [Concomitant]
     Indication: COVID-19 immunisation
     Dosage: DOSE #3, SINGLE
  7. COVID-19 VACCINE [Concomitant]
     Dosage: DOSE #2, SINGLE
  8. COVID-19 VACCINE [Concomitant]
     Dosage: DOSE #1, SINGLE
  9. DILTIAZEM [Concomitant]
     Active Substance: DILTIAZEM
     Dosage: 120 MG, DAILY
  10. BAZEDOXIFENE ACETATE\ESTROGENS, CONJUGATED [Concomitant]
     Active Substance: BAZEDOXIFENE ACETATE\ESTROGENS, CONJUGATED
     Dosage: 0.4/20 MG DAILY
  11. MAXALT [Concomitant]
     Active Substance: RIZATRIPTAN BENZOATE
     Dosage: 10 MG P.R.N
  12. PREDNISONE [Concomitant]
     Active Substance: PREDNISONE
     Indication: Psoriatic arthropathy
     Dosage: 6 MG, DAILY
  13. PERINDOPRIL [Concomitant]
     Active Substance: PERINDOPRIL
     Dosage: UNK
  14. RABEPRAZOLE [Concomitant]
     Active Substance: RABEPRAZOLE
     Dosage: 20 MG, DAILY
  15. XELJANZ XR [Concomitant]
     Active Substance: TOFACITINIB CITRATE
     Indication: Psoriatic arthropathy
     Dosage: 11 MG, 1X/DAY
     Route: 048
     Dates: start: 20220104
  16. TIAPROFENIC ACID [Concomitant]
     Active Substance: TIAPROFENIC ACID
     Dosage: 300 MG, 2X/DAY (BII.D)

REACTIONS (9)
  - Blood pressure diastolic decreased [Unknown]
  - Rash [Recovering/Resolving]
  - Scab [Recovering/Resolving]
  - Tenderness [Unknown]
  - Feeling hot [Unknown]
  - Pain [Unknown]
  - Erythema [Unknown]
  - Off label use [Unknown]
  - Drug ineffective for unapproved indication [Unknown]

NARRATIVE: CASE EVENT DATE: 20230116
